FAERS Safety Report 8294261-9 (Version None)
Quarter: 2012Q2

REPORT INFORMATION
  Report Type: 
  Country: None (occurrence: None)
  Receive Date: 20120418
  Receipt Date: 20120413
  Transmission Date: 20120825
  Serious: Yes (Other)
  Sender: FDA-Public Use
  Company Number: IE-PFIZER INC-2012035336

PATIENT
  Age: 38 Year
  Sex: Female

DRUGS (1)
  1. VARENICLINE TARTRATE [Suspect]
     Indication: SMOKING CESSATION THERAPY
     Dosage: UNK

REACTIONS (4)
  - BLINDNESS TRANSIENT [None]
  - CARDIAC VALVE DISEASE [None]
  - TRANSIENT ISCHAEMIC ATTACK [None]
  - BLINDNESS [None]
